FAERS Safety Report 4986731-3 (Version None)
Quarter: 2006Q2

REPORT INFORMATION
  Report Type: 
  Country: None (occurrence: None)
  Receive Date: 20060428
  Receipt Date: 20051116
  Transmission Date: 20061013
  Serious: Yes (Hospitalization, Disabling)
  Sender: FDA-Public Use
  Company Number: US-MERCK-0511USA03047

PATIENT
  Age: 74 Year
  Sex: Female
  Weight: 68 kg

DRUGS (2)
  1. VIOXX [Suspect]
     Indication: ARTHRITIS
     Route: 048
     Dates: start: 20010101, end: 20040930
  2. TYLENOL (CAPLET) [Concomitant]
     Route: 065

REACTIONS (3)
  - CHEST PAIN [None]
  - HEAD INJURY [None]
  - MYOCARDIAL INFARCTION [None]
